FAERS Safety Report 6364935-5 (Version None)
Quarter: 2009Q3

REPORT INFORMATION
  Report Type: 
  Country: None (occurrence: None)
  Receive Date: 20090919
  Receipt Date: 20090803
  Transmission Date: 20100115
  Serious: Yes (Hospitalization)
  Sender: FDA-Public Use
  Company Number: US-ABBOTT-09P-163-0589152-00

PATIENT
  Sex: Female
  Weight: 133.93 kg

DRUGS (16)
  1. HUMIRA [Suspect]
     Indication: RHEUMATOID ARTHRITIS
     Dates: start: 20060803, end: 20070803
  2. HUMIRA [Suspect]
     Dates: start: 20090731
  3. FLUCONAZOLE [Concomitant]
     Indication: HYPERSENSITIVITY
  4. SIMVASTATIN [Concomitant]
     Indication: BLOOD CHOLESTEROL INCREASED
  5. POTASSIUM CHLORIDE [Concomitant]
     Indication: DRUG USE FOR UNKNOWN INDICATION
  6. FURSEMIDE [Concomitant]
     Indication: HYPERTENSION
  7. FURSEMIDE [Concomitant]
     Indication: JOINT SWELLING
  8. METROPROLOL SUCCINATE [Concomitant]
     Indication: HYPERTENSION
  9. CYMBALTA [Concomitant]
     Indication: DEPRESSION
  10. GABAPENTIN [Concomitant]
     Indication: NEUROPATHY PERIPHERAL
  11. DETROL LA [Concomitant]
     Indication: HYPERTONIC BLADDER
  12. ZOLPIDEN [Concomitant]
     Indication: INSOMNIA
  13. CEPHLEXIN [Concomitant]
     Indication: URINARY TRACT INFECTION
  14. RANITIDINE HCL [Concomitant]
     Indication: GASTROOESOPHAGEAL REFLUX DISEASE
  15. ARICEPT [Concomitant]
     Indication: MEMORY IMPAIRMENT
  16. LYRICA [Concomitant]
     Indication: FIBROMYALGIA

REACTIONS (4)
  - FUNGAL INFECTION [None]
  - HERPES ZOSTER [None]
  - SUBCUTANEOUS ABSCESS [None]
  - WOUND INFECTION STAPHYLOCOCCAL [None]
